FAERS Safety Report 24391538 (Version 1)
Quarter: 2024Q4

REPORT INFORMATION
  Report Type: Spontaneous
  Country: US (occurrence: None)
  Receive Date: 20241002
  Receipt Date: 20241002
  Transmission Date: 20250114
  Serious: Yes (Other)
  Sender: Public
  Company Number: None

PATIENT
  Age: 50 Year
  Sex: Female

DRUGS (1)
  1. REVLIMID [Suspect]
     Active Substance: LENALIDOMIDE
     Indication: Plasma cell myeloma
     Dosage: OTHER FREQUENCY : DAILY FOR 21 DAYS, THEN 7 DAYS OFF;?
     Dates: start: 20230621

REACTIONS (3)
  - Skin discolouration [None]
  - Skin discolouration [None]
  - Swelling [None]

NARRATIVE: CASE EVENT DATE: 20231001
